FAERS Safety Report 10042650 (Version 1)
Quarter: 2014Q1

REPORT INFORMATION
  Report Type: Spontaneous
  Country: LB (occurrence: LB)
  Receive Date: 20140327
  Receipt Date: 20140327
  Transmission Date: 20141002
  Serious: Yes (Other)
  Sender: FDA-Public Use
  Company Number: LB-BRISTOL-MYERS SQUIBB COMPANY-20542585

PATIENT
  Age: 81 Year
  Sex: 0

DRUGS (1)
  1. ABATACEPT SUBQ INJECTION 125MG/ML [Suspect]
     Route: 058

REACTIONS (4)
  - Renal failure [Unknown]
  - Synovial cyst [Unknown]
  - Pyrexia [Unknown]
  - Muscular weakness [Unknown]
